FAERS Safety Report 17349215 (Version 2)
Quarter: 2020Q1

REPORT INFORMATION
  Report Type: Spontaneous
  Country: DE (occurrence: DE)
  Receive Date: 20200129
  Receipt Date: 20200213
  Transmission Date: 20200409
  Serious: Yes (Other)
  Sender: FDA-Public Use
  Company Number: DE-009507513-2001DEU007441

PATIENT
  Age: 26 Year
  Sex: Female

DRUGS (3)
  1. NUVARING [Suspect]
     Active Substance: ETHINYL ESTRADIOL\ETONOGESTREL
     Dosage: 1 DOSAGE FORM, QM; 3 WEEKS OF USE THEN 1 WEEK OF PAUSE
     Route: 067
     Dates: start: 201806
  2. NUVARING [Suspect]
     Active Substance: ETHINYL ESTRADIOL\ETONOGESTREL
     Dosage: 1 DOSAGE FORM, QM; 3 WEEKS OF USE THEN 1 WEEK OF PAUSE
     Route: 067
     Dates: start: 20191125, end: 20191216
  3. NUVARING [Suspect]
     Active Substance: ETHINYL ESTRADIOL\ETONOGESTREL
     Dosage: 1 DOSAGE FORM, QM; 3 WEEKS OF USE THEN 1 WEEK OF PAUSE
     Route: 067
     Dates: start: 20191223, end: 20200113

REACTIONS (2)
  - Pregnancy on contraceptive [Not Recovered/Not Resolved]
  - Unintended pregnancy [Not Recovered/Not Resolved]

NARRATIVE: CASE EVENT DATE: 20191015
